FAERS Safety Report 6091566-7 (Version None)
Quarter: 2009Q1

REPORT INFORMATION
  Report Type: 
  Country: None (occurrence: None)
  Receive Date: 20090225
  Receipt Date: 20080418
  Transmission Date: 20090719
  Serious: No
  Sender: FDA-Public Use
  Company Number: A0703351A

PATIENT
  Age: 40 Year
  Sex: Female

DRUGS (3)
  1. VALTREX [Suspect]
     Indication: EPSTEIN-BARR VIRUS INFECTION
     Dosage: 1G PER DAY
     Route: 048
     Dates: start: 20040101
  2. CHOLESTEROL REDUCING AGENT [Concomitant]
  3. HORMONE REPLACEMENT THERAPY [Concomitant]

REACTIONS (2)
  - OFF LABEL USE [None]
  - THERAPEUTIC RESPONSE UNEXPECTED [None]
